FAERS Safety Report 6057627-3 (Version None)
Quarter: 2009Q1

REPORT INFORMATION
  Report Type: 
  Country: None (occurrence: None)
  Receive Date: 20090127
  Receipt Date: 20090127
  Transmission Date: 20090719
  Serious: Yes (Death)
  Sender: FDA-Public Use
  Company Number: None

PATIENT
  Age: 62 Year
  Sex: Male
  Weight: 113.3993 kg

DRUGS (1)
  1. ENBREL [Suspect]
     Indication: RHEUMATOID ARTHRITIS
     Dosage: WEEKLY SQ
     Route: 058
     Dates: start: 20060101, end: 20070601

REACTIONS (4)
  - BODY TEMPERATURE INCREASED [None]
  - LIVER DISORDER [None]
  - RENAL CELL CARCINOMA [None]
  - SPINAL DISORDER [None]
